FAERS Safety Report 15483698 (Version 1)
Quarter: 2018Q4

REPORT INFORMATION
  Report Type: Spontaneous
  Country: FR (occurrence: FR)
  Receive Date: 20181010
  Receipt Date: 20181010
  Transmission Date: 20190205
  Serious: Yes (Hospitalization, Other)
  Sender: FDA-Public Use
  Company Number: FR-GLAXOSMITHKLINE-B0822318A

PATIENT
  Age: 34 Year
  Sex: Female

DRUGS (3)
  1. CETIRIZINE [Concomitant]
     Active Substance: CETIRIZINE HYDROCHLORIDE
     Indication: CONJUNCTIVITIS
     Route: 065
     Dates: start: 20120617, end: 20120618
  2. LAMICTAL [Suspect]
     Active Substance: LAMOTRIGINE
     Indication: EPILEPSY
     Dosage: UNK
     Route: 048
     Dates: start: 20120604, end: 20120618
  3. DEPAKINE CHRONO [Interacting]
     Active Substance: VALPROATE SODIUM
     Indication: EPILEPSY
     Dosage: UNK UNK, U
     Route: 048
     Dates: start: 201110

REACTIONS (13)
  - Stevens-Johnson syndrome [Recovered/Resolved]
  - Enanthema [Recovered/Resolved]
  - Conjunctivitis [Recovered/Resolved]
  - Oropharyngeal pain [Recovered/Resolved]
  - Skin exfoliation [Recovered/Resolved]
  - Incorrect dose administered [Unknown]
  - Pruritus [Recovered/Resolved]
  - Leukopenia [Recovered/Resolved]
  - Liver function test abnormal [Recovered/Resolved]
  - Rash [Recovered/Resolved]
  - Pyrexia [Recovered/Resolved]
  - Thrombocytopenia [Recovered/Resolved]
  - Drug interaction [Recovered/Resolved]

NARRATIVE: CASE EVENT DATE: 201206
